FAERS Safety Report 6231842-8 (Version None)
Quarter: 2009Q2

REPORT INFORMATION
  Report Type: 
  Country: None (occurrence: None)
  Receive Date: 20090616
  Receipt Date: 20080521
  Transmission Date: 20091009
  Serious: No
  Sender: FDA-Public Use
  Company Number: US-BAYER-200812054BCC

PATIENT
  Age: 35 Year
  Sex: Female
  Weight: 62 kg

DRUGS (1)
  1. MIDOL [Suspect]
     Indication: DYSMENORRHOEA
     Dosage: AS USED: 1 DF  UNIT DOSE: 1 DF
     Route: 048
     Dates: start: 20080520

REACTIONS (1)
  - SOMNOLENCE [None]
